FAERS Safety Report 19605106 (Version 1)
Quarter: 2021Q3

REPORT INFORMATION
  Report Type: Report from Study
  Country: US (occurrence: US)
  Receive Date: 20210723
  Receipt Date: 20210723
  Transmission Date: 20211014
  Serious: Yes (Hospitalization)
  Sender: FDA-Public Use
  Company Number: US-TEVA-2021-US-1933408

PATIENT
  Age: 68 Year
  Sex: Female

DRUGS (1)
  1. AUSTEDO [Suspect]
     Active Substance: DEUTETRABENAZINE
     Indication: TARDIVE DYSKINESIA
     Dosage: 48 MILLIGRAM DAILY;
     Dates: start: 2019

REACTIONS (3)
  - Drug withdrawal syndrome [Unknown]
  - Incorrect dose administered [Unknown]
  - Adverse event [Unknown]

NARRATIVE: CASE EVENT DATE: 20210712
